FAERS Safety Report 4289118-4 (Version None)
Quarter: 2004Q1

REPORT INFORMATION
  Report Type: 
  Country: None (occurrence: None)
  Receive Date: 20040206
  Receipt Date: 20040202
  Transmission Date: 20041129
  Serious: Yes (Hospitalization)
  Sender: FDA-Public Use
  Company Number: TPA2004A00125

PATIENT
  Sex: Female

DRUGS (3)
  1. ACTOS [Suspect]
     Dosage: PER ORAL
     Route: 048
  2. LENTE INSULIN [Concomitant]
  3. COUMADIN [Concomitant]

REACTIONS (2)
  - ANAEMIA [None]
  - HAEMOLYSIS [None]
